FAERS Safety Report 9925342 (Version 1)
Quarter: 2014Q1

REPORT INFORMATION
  Report Type: Spontaneous
  Country: US (occurrence: None)
  Receive Date: 20140224
  Receipt Date: 20140224
  Transmission Date: 20141002
  Serious: No
  Sender: FDA-Public Use
  Company Number: 2014P1001338

PATIENT
  Age: 60 Year
  Sex: Female

DRUGS (6)
  1. FUROSEMIDE [Suspect]
  2. AMIODARONE [Suspect]
  3. LISINOPRIL [Suspect]
  4. SPIRONOLACTONE [Suspect]
  5. LEVOTHYROXINE [Suspect]
  6. WARFARIN [Suspect]

REACTIONS (21)
  - Asthenia [None]
  - Accidental overdose [None]
  - Gait disturbance [None]
  - Weight decreased [None]
  - Disorientation [None]
  - Tremor [None]
  - Lip haemorrhage [None]
  - Mucous membrane disorder [None]
  - Heart rate irregular [None]
  - Cardiac murmur [None]
  - Hyperreflexia [None]
  - Atrial fibrillation [None]
  - Electrocardiogram QRS complex prolonged [None]
  - Electrocardiogram T wave peaked [None]
  - Blood potassium increased [None]
  - Blood urea increased [None]
  - Haematocrit decreased [None]
  - Blood creatinine increased [None]
  - International normalised ratio increased [None]
  - Hypotension [None]
  - Gastrointestinal haemorrhage [None]
